FAERS Safety Report 6502317-3 (Version None)
Quarter: 2009Q4

REPORT INFORMATION
  Report Type: 
  Country: None (occurrence: None)
  Receive Date: 20091216
  Receipt Date: 20091013
  Transmission Date: 20100525
  Serious: No
  Sender: FDA-Public Use
  Company Number: US-ABBOTT-09P-163-0603179-00

PATIENT
  Sex: Male
  Weight: 127.12 kg

DRUGS (6)
  1. TRILIPIX [Suspect]
     Indication: BLOOD TRIGLYCERIDES INCREASED
     Route: 048
  2. SIMCOR [Concomitant]
     Indication: DRUG USE FOR UNKNOWN INDICATION
  3. PATANASE [Concomitant]
     Indication: DRUG USE FOR UNKNOWN INDICATION
  4. VERAMYST [Concomitant]
     Indication: DRUG USE FOR UNKNOWN INDICATION
  5. ATENOLOL [Concomitant]
     Indication: HYPERTENSION
  6. LOVAZA [Concomitant]
     Indication: DRUG USE FOR UNKNOWN INDICATION

REACTIONS (2)
  - ARTHRALGIA [None]
  - MYALGIA [None]
